FAERS Safety Report 9362164 (Version 1)
Quarter: 2013Q2

REPORT INFORMATION
  Report Type: Spontaneous
  Country: US (occurrence: US)
  Receive Date: 20130622
  Receipt Date: 20130622
  Transmission Date: 20140414
  Serious: Yes (Other)
  Sender: FDA-Public Use
  Company Number: US-MERCK-1306USA010411

PATIENT
  Sex: 0

DRUGS (2)
  1. JANUVIA [Suspect]
     Dosage: UNK
     Route: 048
     Dates: start: 20130614, end: 20130617
  2. METFORMIN [Concomitant]

REACTIONS (1)
  - Pancreatitis [Unknown]
